FAERS Safety Report 9381926 (Version 3)
Quarter: 2013Q3

REPORT INFORMATION
  Report Type: Spontaneous
  Country: IE (occurrence: IE)
  Receive Date: 20130703
  Receipt Date: 20130820
  Transmission Date: 20140515
  Serious: Yes (Death, Other)
  Sender: FDA-Public Use
  Company Number: IE-B.I. PHARMACEUTICALS,INC./RIDGEFIELD-2013-UK-01336UK

PATIENT
  Age: 88 Year
  Sex: Female

DRUGS (8)
  1. PRADAXA [Suspect]
     Indication: ATRIAL FIBRILLATION
     Dosage: 220 MG
     Route: 048
     Dates: start: 20110531, end: 20130531
  2. BUTRANS [Concomitant]
     Indication: PAIN IN EXTREMITY
     Dosage: 20MCG/HR
     Route: 062
  3. RAMIPRIL [Concomitant]
     Indication: CARDIAC FAILURE
     Dosage: 2.5 MG
  4. OMEPRAZOLE [Concomitant]
     Indication: PROPHYLAXIS AGAINST GASTROINTESTINAL ULCER
     Dosage: 40 MG
  5. ISOSORBIDE MONONITRATE [Concomitant]
     Indication: ANGINA PECTORIS
     Dosage: 30 MG
  6. ALDACTONE [Concomitant]
     Indication: CARDIAC FAILURE
     Dosage: 25 MG
  7. NEBIVOLOL [Concomitant]
     Indication: HYPERTENSION
     Dosage: 2.5 MG
  8. NITROFURANTOIN [Concomitant]
     Indication: URINARY TRACT INFECTION
     Dates: start: 20130522, end: 20130531

REACTIONS (8)
  - Tachycardia [Fatal]
  - Hypoxia [Fatal]
  - Respiratory rate increased [Fatal]
  - Hypothermia [Fatal]
  - Haemoglobin decreased [Fatal]
  - Hypotension [Fatal]
  - Coagulopathy [Fatal]
  - Haematuria [Recovered/Resolved]
